FAERS Safety Report 9380191 (Version 1)
Quarter: 2013Q3

REPORT INFORMATION
  Report Type: Spontaneous
  Country: US (occurrence: None)
  Receive Date: 20130701
  Receipt Date: 20130701
  Transmission Date: 20140515
  Serious: Yes (Other)
  Sender: FDA-Public Use
  Company Number: None

PATIENT
  Age: 71 Year
  Sex: Female
  Weight: 99.79 kg

DRUGS (8)
  1. CARVEDILOL [Suspect]
     Indication: HYPERTENSION
     Route: 048
     Dates: start: 20130510, end: 20130620
  2. PLAVIX [Concomitant]
  3. COUMADIN [Concomitant]
  4. RYTHMOL [Concomitant]
  5. SYNTHROID [Concomitant]
  6. REMERON [Concomitant]
  7. AMLODIPINE [Concomitant]
  8. LIPITOR [Concomitant]

REACTIONS (3)
  - Dizziness [None]
  - Blood pressure fluctuation [None]
  - Heart rate abnormal [None]
